FAERS Safety Report 4369428-2 (Version None)
Quarter: 2004Q2

REPORT INFORMATION
  Report Type: 
  Country: None (occurrence: None)
  Receive Date: 20040527
  Receipt Date: 20040517
  Transmission Date: 20050107
  Serious: Yes (Other)
  Sender: FDA-Public Use
  Company Number: USA-2002-0003285

PATIENT
  Age: 50 Year
  Sex: Female
  Weight: 66.2 kg

DRUGS (13)
  1. OXYCONTIN [Suspect]
     Indication: PAIN
     Dosage: 40 MG, BID, ORAL; 80 MG, Q12H PRN, ORAL; 20 MG, BID, ORAL;  80 MG, BID,
     Route: 048
  2. ZOLOFT [Concomitant]
  3. LASIX [Concomitant]
  4. XANAX [Concomitant]
  5. VIOXX [Concomitant]
  6. PREMARIN [Concomitant]
  7. DESLORATADINE (DESLORATADINE) [Concomitant]
  8. CALCIUM [Concomitant]
  9. DEMADEX [Concomitant]
  10. CELEXA [Concomitant]
  11. ZYRTEC [Concomitant]
  12. CLONAZEPAM [Concomitant]
  13. PROZAC [Concomitant]

REACTIONS (48)
  - ANXIETY [None]
  - ARTHRALGIA [None]
  - BLOOD PRESSURE SYSTOLIC INCREASED [None]
  - CARTILAGE INJURY [None]
  - CHEILITIS [None]
  - CHEST DISCOMFORT [None]
  - CHEST PAIN [None]
  - COLD SWEAT [None]
  - CONDITION AGGRAVATED [None]
  - CONSTIPATION [None]
  - CREPITATIONS [None]
  - DEPRESSION [None]
  - DRUG DEPENDENCE [None]
  - DRUG INEFFECTIVE [None]
  - DRUG WITHDRAWAL SYNDROME [None]
  - DYSPHAGIA [None]
  - DYSPNOEA [None]
  - GINGIVAL BLEEDING [None]
  - HOT FLUSH [None]
  - HYPERHIDROSIS [None]
  - HYPOAESTHESIA [None]
  - JOINT STIFFNESS [None]
  - MEDICATION ERROR [None]
  - MENISCUS LESION [None]
  - MOUTH ULCERATION [None]
  - MUSCLE SPASMS [None]
  - MUSCLE TIGHTNESS [None]
  - MUSCULOSKELETAL STIFFNESS [None]
  - MYALGIA [None]
  - NASAL CONGESTION [None]
  - NAUSEA [None]
  - NIGHT SWEATS [None]
  - NODAL OSTEOARTHRITIS [None]
  - OEDEMA [None]
  - OEDEMA PERIPHERAL [None]
  - ORAL PAIN [None]
  - PAIN [None]
  - PAIN IN EXTREMITY [None]
  - PARAESTHESIA [None]
  - POSTNASAL DRIP [None]
  - PRODUCTIVE COUGH [None]
  - RHINITIS ALLERGIC [None]
  - SOMNOLENCE [None]
  - STOMATITIS [None]
  - STRESS SYMPTOMS [None]
  - TENOSYNOVITIS [None]
  - TOOTH DISORDER [None]
  - URINARY INCONTINENCE [None]
